FAERS Safety Report 14773957 (Version 4)
Quarter: 2018Q2

REPORT INFORMATION
  Report Type: Spontaneous
  Country: US (occurrence: US)
  Receive Date: 20180418
  Receipt Date: 20180627
  Transmission Date: 20180711
  Serious: Yes (Other)
  Sender: FDA-Public Use
  Company Number: US-MALLINCKRODT-T201705565

PATIENT
  Sex: Female

DRUGS (5)
  1. PREDNISONE. [Suspect]
     Active Substance: PREDNISONE
     Indication: PRODUCT USED FOR UNKNOWN INDICATION
     Dosage: UNK
     Route: 065
  2. H.P. ACTHAR [Suspect]
     Active Substance: CORTICOTROPIN
     Indication: DERMATOMYOSITIS
     Dosage: 80 UNITS/ ML,  2 TIMES PER WEEK, (TUESDAY/FRIDAY)
     Route: 058
     Dates: start: 20170313
  3. METHOTREXATE. [Concomitant]
     Active Substance: METHOTREXATE
     Indication: PRODUCT USED FOR UNKNOWN INDICATION
     Dosage: UNKNOWN
     Route: 065
  4. H.P. ACTHAR [Suspect]
     Active Substance: CORTICOTROPIN
     Indication: POLYMYOSITIS
     Dosage: 80 UNITS / 1 ML 2 TIMES PER WEEK TUESDAY/FRIDAY
     Route: 058
  5. CELLCEPT [Concomitant]
     Active Substance: MYCOPHENOLATE MOFETIL\MYCOPHENOLATE MOFETIL HYDROCHLORIDE
     Indication: PRODUCT USED FOR UNKNOWN INDICATION
     Dosage: UNKNOWN
     Route: 065
     Dates: start: 201710

REACTIONS (21)
  - Dermatomyositis [Unknown]
  - Polymyositis [Unknown]
  - Condition aggravated [Unknown]
  - Loss of personal independence in daily activities [Recovering/Resolving]
  - Fatigue [Unknown]
  - Stress at work [Unknown]
  - Sinusitis [Unknown]
  - Swelling face [Not Recovered/Not Resolved]
  - Hypoaesthesia oral [Not Recovered/Not Resolved]
  - Skin disorder [Not Recovered/Not Resolved]
  - Wheelchair user [Recovering/Resolving]
  - Hypersensitivity [Unknown]
  - Nasopharyngitis [Not Recovered/Not Resolved]
  - Pruritus [Not Recovered/Not Resolved]
  - Asthenia [Not Recovered/Not Resolved]
  - Malaise [Not Recovered/Not Resolved]
  - Gingival pain [Unknown]
  - Injection site bruising [Not Recovered/Not Resolved]
  - Lower respiratory tract infection [Unknown]
  - Depressed mood [Unknown]
  - Drug dose omission [Unknown]
